FAERS Safety Report 4506927-4 (Version None)
Quarter: 2004Q4

REPORT INFORMATION
  Report Type: 
  Country: None (occurrence: None)
  Receive Date: 20041117
  Receipt Date: 20041110
  Transmission Date: 20050328
  Serious: Yes (Other)
  Sender: FDA-Public Use
  Company Number: TOR 2004-0033

PATIENT
  Age: 45 Year
  Sex: Female

DRUGS (1)
  1. FARESTON [Suspect]
     Indication: BREAST CANCER
     Dates: start: 20011001, end: 20040701

REACTIONS (3)
  - HYPOKINESIA [None]
  - PAIN IN EXTREMITY [None]
  - SWELLING [None]
